FAERS Safety Report 7339193-5 (Version None)
Quarter: 2011Q1

REPORT INFORMATION
  Report Type: 
  Country: None (occurrence: None)
  Receive Date: 20110308
  Receipt Date: 20110228
  Transmission Date: 20110831
  Serious: Yes (Hospitalization)
  Sender: FDA-Public Use
  Company Number: PHHO2011US03949

PATIENT
  Sex: Male
  Weight: 181 kg

DRUGS (1)
  1. CERTICAN [Suspect]
     Indication: RENAL TRANSPLANT
     Dosage: 2.25 MG, Q12H
     Route: 048
     Dates: start: 20110127

REACTIONS (7)
  - PULMONARY EMBOLISM [None]
  - ACIDOSIS [None]
  - TACHYPNOEA [None]
  - DEEP VEIN THROMBOSIS [None]
  - RESPIRATORY DISTRESS [None]
  - PYREXIA [None]
  - ENDOTRACHEAL INTUBATION [None]
